FAERS Safety Report 5522499-X (Version None)
Quarter: 2007Q4

REPORT INFORMATION
  Report Type: 
  Country: None (occurrence: None)
  Receive Date: 20071120
  Receipt Date: 20071113
  Transmission Date: 20080405
  Serious: Yes (Death)
  Sender: FDA-Public Use
  Company Number: TR-ELI_LILLY_AND_COMPANY-TR200711003742

PATIENT
  Sex: Female
  Weight: 59 kg

DRUGS (1)
  1. HUMULIN 70/30 [Suspect]
     Dosage: UNK, 3/D
     Route: 065
     Dates: start: 19920101

REACTIONS (1)
  - DEATH [None]
